FAERS Safety Report 15131407 (Version 2)
Quarter: 2018Q3

REPORT INFORMATION
  Report Type: Spontaneous
  Country: JP (occurrence: JP)
  Receive Date: 20180711
  Receipt Date: 20180815
  Transmission Date: 20181010
  Serious: Yes (Hospitalization, Other)
  Sender: FDA-Public Use
  Company Number: JP-GILEAD-2018-0347262

PATIENT
  Age: 89 Year
  Sex: Female
  Weight: 45 kg

DRUGS (18)
  1. TEARBALANCE [Concomitant]
     Active Substance: HYALURONATE SODIUM
  2. CALONAL [Concomitant]
     Active Substance: ACETAMINOPHEN
  3. AMLODIPINE BESILATE [Concomitant]
     Active Substance: AMLODIPINE BESYLATE
  4. MAGMITT [Concomitant]
     Active Substance: MAGNESIUM OXIDE
  5. FUROSEMIDE. [Concomitant]
     Active Substance: FUROSEMIDE
  6. PRAVASTATIN SODIUM. [Concomitant]
     Active Substance: PRAVASTATIN SODIUM
  7. DAIPHEN [Concomitant]
     Active Substance: SULFAMETHOXAZOLE\TRIMETHOPRIM
  8. VEMLIDY [Suspect]
     Active Substance: TENOFOVIR ALAFENAMIDE FUMARATE
     Indication: ANTIVIRAL PROPHYLAXIS
     Dosage: UNK
     Route: 048
     Dates: start: 20180427
  9. MOHRUS [Concomitant]
     Active Substance: KETOPROFEN
  10. ETIZOLAM [Concomitant]
     Active Substance: ETIZOLAM
  11. PRALIA [Suspect]
     Active Substance: DENOSUMAB
     Indication: PRODUCT USED FOR UNKNOWN INDICATION
     Dosage: UNK, Q6MONTHS
     Route: 058
     Dates: start: 20180411
  12. TRAZENTA [Concomitant]
     Active Substance: LINAGLIPTIN
  13. PREDNISOLONE. [Concomitant]
     Active Substance: PREDNISOLONE
  14. SODIUM GUALENATE HYDRATE [Concomitant]
     Active Substance: SODIUM GUALENATE MONOHYDRATE
  15. LUNESTA [Concomitant]
     Active Substance: ESZOPICLONE
  16. ALLOPURINOL. [Concomitant]
     Active Substance: ALLOPURINOL
  17. ALFACALCIDOL [Concomitant]
     Active Substance: ALFACALCIDOL
  18. CARBOCISTEINE [Concomitant]
     Active Substance: CARBOCYSTEINE

REACTIONS (2)
  - Off label use [Unknown]
  - Febrile neutropenia [Recovered/Resolved]

NARRATIVE: CASE EVENT DATE: 20180427
